FAERS Safety Report 8299247-6 (Version None)
Quarter: 2012Q2

REPORT INFORMATION
  Report Type: 
  Country: None (occurrence: None)
  Receive Date: 20120419
  Receipt Date: 20120416
  Transmission Date: 20120825
  Serious: No
  Sender: FDA-Public Use
  Company Number: US-PFIZER INC-2012094949

PATIENT
  Sex: Female
  Weight: 62 kg

DRUGS (1)
  1. LIPITOR [Suspect]
     Indication: BLOOD CHOLESTEROL INCREASED
     Dosage: 20 MG, 1X/DAY
     Route: 048
     Dates: start: 19990101, end: 19990101

REACTIONS (3)
  - NAUSEA [None]
  - MYALGIA [None]
  - HEPATIC FUNCTION ABNORMAL [None]
